FAERS Safety Report 4748329-1 (Version None)
Quarter: 2005Q3

REPORT INFORMATION
  Report Type: 
  Country: None (occurrence: None)
  Receive Date: 20050815
  Receipt Date: 20050518
  Transmission Date: 20060218
  Serious: No
  Sender: FDA-Public Use
  Company Number: USA050188552

PATIENT
  Age: 49 Year
  Sex: Male

DRUGS (3)
  1. CIALIS [Suspect]
     Indication: ERECTILE DYSFUNCTION
     Dosage: 20 MG
     Dates: start: 20050101
  2. VALIUM [Concomitant]
  3. LUVOX [Concomitant]

REACTIONS (6)
  - BLOODY DISCHARGE [None]
  - DRUG INEFFECTIVE [None]
  - INSOMNIA [None]
  - PAINFUL ERECTION [None]
  - PENILE PAIN [None]
  - SPONTANEOUS PENILE ERECTION [None]
